FAERS Safety Report 13973651 (Version 3)
Quarter: 2017Q4

REPORT INFORMATION
  Report Type: Report from Study
  Country: US (occurrence: US)
  Receive Date: 20170915
  Receipt Date: 20171016
  Transmission Date: 20180321
  Serious: No
  Sender: FDA-Public Use
  Company Number: PHEH2017US029511

PATIENT
  Age: 53 Year
  Sex: Male

DRUGS (1)
  1. COSENTYX [Suspect]
     Active Substance: SECUKINUMAB
     Indication: PSORIASIS
     Dosage: 150 MG, QW
     Route: 058
     Dates: start: 20170829

REACTIONS (9)
  - Back pain [Unknown]
  - Arthropathy [Unknown]
  - Skin fissures [Unknown]
  - Ear discomfort [Unknown]
  - Ear pain [Unknown]
  - Rash erythematous [Unknown]
  - Erythema of eyelid [Unknown]
  - Rash pruritic [Recovered/Resolved]
  - Otorrhoea [Unknown]

NARRATIVE: CASE EVENT DATE: 20170829
